FAERS Safety Report 15195739 (Version 1)
Quarter: 2018Q3

REPORT INFORMATION
  Report Type: Spontaneous
  Country: JP (occurrence: JP)
  Receive Date: 20180725
  Receipt Date: 20180725
  Transmission Date: 20181010
  Serious: Yes (Other)
  Sender: FDA-Public Use
  Company Number: JP-PFIZER INC-2018291908

PATIENT

DRUGS (2)
  1. NEORAL [Interacting]
     Active Substance: CYCLOSPORINE
     Dosage: UNK
  2. ZITHROMAC 250MG [Suspect]
     Active Substance: AZITHROMYCIN DIHYDRATE
     Dosage: 2 DF, UNK
     Dates: start: 20180705, end: 20180707

REACTIONS (5)
  - Drug administration error [Unknown]
  - Oedema [Recovered/Resolved]
  - Drug level increased [Unknown]
  - Drug interaction [Unknown]
  - Renal impairment [Unknown]

NARRATIVE: CASE EVENT DATE: 201807
